FAERS Safety Report 7920325-2 (Version None)
Quarter: 2011Q4

REPORT INFORMATION
  Report Type: 
  Country: None (occurrence: None)
  Receive Date: 20111115
  Receipt Date: 20111103
  Transmission Date: 20120403
  Serious: Yes (Death, Other)
  Sender: FDA-Public Use
  Company Number: ABR_00256_2011

PATIENT
  Age: 20 Year
  Sex: Male

DRUGS (6)
  1. LOPERAMIDE [Suspect]
     Indication: PRODUCT USED FOR UNKNOWN INDICATION
     Dosage: DF
  2. ERYTHROMYCIN [Suspect]
     Indication: PRODUCT USED FOR UNKNOWN INDICATION
  3. ACETAMINOPHEN [Suspect]
     Indication: PRODUCT USED FOR UNKNOWN INDICATION
  4. AMOXICILLIN [Suspect]
     Indication: PRODUCT USED FOR UNKNOWN INDICATION
     Dosage: DF
  5. TRICYCLIC ANTIDEPRESSANTS (TRICYCLIC ANTIDEPRESSANTS) [Suspect]
     Indication: PRODUCT USED FOR UNKNOWN INDICATION
     Dosage: DF
  6. IRON (IRON (FERROUS SULFATE)) [Suspect]
     Indication: PRODUCT USED FOR UNKNOWN INDICATION
     Dosage: DF

REACTIONS (11)
  - LIVER INJURY [None]
  - MULTIPLE DRUG OVERDOSE [None]
  - BRAIN HERNIATION [None]
  - ACUTE HEPATIC FAILURE [None]
  - TOXICITY TO VARIOUS AGENTS [None]
  - NEUROLOGICAL DECOMPENSATION [None]
  - BRAIN OEDEMA [None]
  - AMMONIA INCREASED [None]
  - HEPATIC NECROSIS [None]
  - METABOLIC DISORDER [None]
  - CHOLESTASIS [None]
